FAERS Safety Report 22019872 (Version 2)
Quarter: 2023Q2

REPORT INFORMATION
  Report Type: Other
  Country: JP (occurrence: JP)
  Receive Date: 20230222
  Receipt Date: 20230425
  Transmission Date: 20230722
  Serious: Yes (Other)
  Sender: FDA-Public Use
  Company Number: JP-ASTELLAS-2022JP012095

PATIENT
  Age: 79 Year
  Sex: Male
  Weight: 47.1 kg

DRUGS (10)
  1. PADCEV [Suspect]
     Active Substance: ENFORTUMAB VEDOTIN-EJFV
     Indication: Ureteric cancer
     Dosage: 60 MG, 3 DOSES AND 1 REST
     Route: 041
     Dates: start: 20220705, end: 20221108
  2. CARBOCYSTEINE [Concomitant]
     Active Substance: CARBOCYSTEINE
     Indication: Product used for unknown indication
     Dosage: UNK UNK, UNKNOWN FREQ.
     Route: 065
  3. FEXOFENADINE HYDROCHLORIDE [Concomitant]
     Active Substance: FEXOFENADINE HYDROCHLORIDE
     Indication: Product used for unknown indication
     Dosage: UNK UNK, UNKNOWN FREQ.
     Route: 065
  4. PROTOPIC [Concomitant]
     Active Substance: TACROLIMUS
     Indication: Product used for unknown indication
     Dosage: UNK UNK, UNKNOWN FREQ.
     Route: 065
  5. NIZORAL [Concomitant]
     Active Substance: KETOCONAZOLE
     Indication: Product used for unknown indication
     Dosage: UNK UNK, UNKNOWN FREQ.
     Route: 065
  6. Astomin [Concomitant]
     Indication: Product used for unknown indication
     Dosage: UNK UNK, UNKNOWN FREQ.
     Route: 065
  7. LEVOFLOXACIN HEMIHYDRATE [Concomitant]
     Active Substance: LEVOFLOXACIN
     Indication: Ocular hyperaemia
     Dosage: UNK UNK, UNKNOWN FREQ.
     Route: 065
     Dates: start: 20221101
  8. LEVOFLOXACIN HEMIHYDRATE [Concomitant]
     Active Substance: LEVOFLOXACIN
     Indication: Lacrimation increased
  9. FLUOROMETHOLONE [Concomitant]
     Active Substance: FLUOROMETHOLONE
     Indication: Ocular hyperaemia
     Dosage: UNK UNK, UNKNOWN FREQ.
     Route: 065
     Dates: start: 20221101
  10. FLUOROMETHOLONE [Concomitant]
     Active Substance: FLUOROMETHOLONE
     Indication: Lacrimation increased

REACTIONS (7)
  - Cataract [Not Recovered/Not Resolved]
  - Skin discolouration [Recovered/Resolved]
  - Ocular hyperaemia [Recovered/Resolved]
  - Vision blurred [Not Recovered/Not Resolved]
  - Alopecia [Not Recovered/Not Resolved]
  - Lacrimation increased [Recovered/Resolved]
  - Conjunctivitis [Unknown]

NARRATIVE: CASE EVENT DATE: 20220709
